FAERS Safety Report 8882324 (Version 2)
Quarter: 2014Q2

REPORT INFORMATION
  Report Type: Spontaneous
  Country: US (occurrence: US)
  Receive Date: 20121102
  Receipt Date: 20130810
  Transmission Date: 20141212
  Serious: Yes (Death)
  Sender: FDA-Public Use
  Company Number: US-BAXTER-2012BAX021786

PATIENT
  Age: 74 Year
  Sex: Female

DRUGS (3)
  1. DIANEAL LOW CALCIUM [Suspect]
     Indication: PERITONEAL DIALYSIS
     Route: 033
     Dates: end: 20121024
  2. DIANEAL LOW CALCIUM [Suspect]
     Indication: PERITONEAL DIALYSIS
     Route: 033
     Dates: end: 20121024
  3. DIANEAL LOW CALCIUM (ULTRABAG) [Suspect]
     Indication: PERITONEAL DIALYSIS
     Route: 033
     Dates: end: 20121024

REACTIONS (7)
  - Cardiogenic shock [Fatal]
  - Cardiac failure congestive [Fatal]
  - Aortic stenosis [Fatal]
  - Loss of consciousness [Unknown]
  - Anxiety [Unknown]
  - Dehydration [Unknown]
  - Hypotension [Unknown]
